FAERS Safety Report 21562900 (Version 2)
Quarter: 2024Q3

REPORT INFORMATION
  Report Type: Report from Study
  Country: IT (occurrence: IT)
  Receive Date: 20221107
  Receipt Date: 20240711
  Transmission Date: 20241016
  Serious: Yes (Hospitalization, Other)
  Sender: BAXTER
  Company Number: None

PATIENT
  Age: 9 Year
  Sex: Male
  Weight: 29 kg

DRUGS (5)
  1. IFOSFAMIDE [Suspect]
     Active Substance: IFOSFAMIDE
     Indication: Osteosarcoma
     Dosage: 3216 MG/DAY FROM DAY 08 TO DAY 12/09/22
     Route: 042
     Dates: start: 20220908, end: 20220912
  2. MIFAMURTIDE [Suspect]
     Active Substance: MIFAMURTIDE
     Indication: Osteosarcoma
     Dosage: 2.14 MG/DAY ON 21, 24, 27, 30/09, 04, 07, 11,
     Route: 042
     Dates: start: 20220921, end: 20221013
  3. DOXORUBICIN HYDROCHLORIDE [Suspect]
     Active Substance: DOXORUBICIN HYDROCHLORIDE
     Indication: Osteosarcoma
     Dosage: 85 MG
     Route: 042
     Dates: start: 20220718, end: 20220718
  4. CARBOPLATIN [Suspect]
     Active Substance: CARBOPLATIN
     Dosage: 68 MG
     Route: 042
     Dates: start: 20220716, end: 20220716
  5. CISPLATIN [Suspect]
     Active Substance: CISPLATIN
     Dosage: 68 MILLIGRAM
     Route: 042
     Dates: start: 20220716, end: 20220716

REACTIONS (3)
  - Hypogammaglobulinaemia [Unknown]
  - Pyrexia [Recovered/Resolved]
  - Constipation [Recovered/Resolved]

NARRATIVE: CASE EVENT DATE: 20220917
